FAERS Safety Report 10003465 (Version 3)
Quarter: 2015Q3

REPORT INFORMATION
  Report Type: Spontaneous
  Country: US (occurrence: US)
  Receive Date: 20140312
  Receipt Date: 20150812
  Transmission Date: 20151125
  Serious: No
  Sender: FDA-Public Use
  Company Number: US-GILEAD-2012-0059258

PATIENT
  Age: 71 Year
  Sex: Female

DRUGS (2)
  1. LETAIRIS [Suspect]
     Active Substance: AMBRISENTAN
     Indication: CHRONIC OBSTRUCTIVE PULMONARY DISEASE
  2. LETAIRIS [Suspect]
     Active Substance: AMBRISENTAN
     Indication: PULMONARY HYPERTENSION
     Dosage: 5 MG, UNK
     Route: 048
     Dates: start: 20090521

REACTIONS (6)
  - Myalgia [Unknown]
  - Back disorder [Unknown]
  - Syncope [Unknown]
  - Intervertebral disc protrusion [Unknown]
  - Malaise [Unknown]
  - Dyspnoea [Unknown]
